FAERS Safety Report 8694762 (Version 3)
Quarter: 2013Q4

REPORT INFORMATION
  Report Type: Spontaneous
  Country: FR (occurrence: FR)
  Receive Date: 20120731
  Receipt Date: 20131105
  Transmission Date: 20140711
  Serious: Yes (Other)
  Sender: FDA-Public Use
  Company Number: FR-MSD-1207FRA010981

PATIENT
  Age: 52 Year
  Sex: Female
  Weight: 111 kg

DRUGS (4)
  1. JANUVIA [Suspect]
     Indication: TYPE 2 DIABETES MELLITUS
     Dosage: 1 DF, QD
     Route: 048
     Dates: start: 201109, end: 20120306
  2. METFORMIN [Concomitant]
     Dosage: UNK
     Route: 048
  3. MOPRAL (OMEPRAZOLE SODIUM) [Concomitant]
     Dosage: UNK
     Route: 048
  4. LEVOTHYROX [Concomitant]
     Dosage: 1 DF, QD

REACTIONS (1)
  - Cough [Recovering/Resolving]
